FAERS Safety Report 24311220 (Version 1)
Quarter: 2024Q3

REPORT INFORMATION
  Report Type: Spontaneous
  Country: US (occurrence: US)
  Receive Date: 20240912
  Receipt Date: 20240912
  Transmission Date: 20241016
  Serious: No
  Sender: PAREXEL
  Company Number: US-NOVEN PHARMACEUTICALS, INC.-2024-NOV-US000183

PATIENT
  Sex: Female

DRUGS (5)
  1. COMBIPATCH [Interacting]
     Active Substance: ESTRADIOL\NORETHINDRONE ACETATE
     Indication: Menopause
     Dosage: 0.05/0.14 MG, UNK
     Route: 062
     Dates: start: 2021
  2. COMBIPATCH [Interacting]
     Active Substance: ESTRADIOL\NORETHINDRONE ACETATE
     Indication: Bone density decreased
  3. NUTRAFOL [Concomitant]
     Indication: Hair texture abnormal
     Dosage: UNKNOWN
     Route: 065
  4. NUTRAFOL [Concomitant]
     Indication: Alopecia
  5. CRESTOR [Concomitant]
     Active Substance: ROSUVASTATIN CALCIUM
     Indication: Blood cholesterol
     Dosage: 5 MG, LOW DOSE
     Route: 065
     Dates: start: 2021

REACTIONS (1)
  - Amnesia [Recovering/Resolving]
